FAERS Safety Report 21884387 (Version 1)
Quarter: 2023Q1

REPORT INFORMATION
  Report Type: Spontaneous
  Country: GR (occurrence: GR)
  Receive Date: 20230119
  Receipt Date: 20230119
  Transmission Date: 20230418
  Serious: Yes (Other)
  Sender: FDA-Public Use
  Company Number: GR-RECORDATI-2023000247

PATIENT

DRUGS (1)
  1. SIGNIFOR LAR [Suspect]
     Active Substance: PASIREOTIDE PAMOATE
     Indication: Pituitary tumour benign
     Dosage: 20 MILLIGRAM, AT A DOSE OF ONE INJECTION PER MONTH
     Dates: start: 2022

REACTIONS (3)
  - Haematochezia [Recovered/Resolved]
  - Intestinal polyp [Unknown]
  - Diverticulum [Unknown]
